FAERS Safety Report 7393099-4 (Version None)
Quarter: 2011Q2

REPORT INFORMATION
  Report Type: 
  Country: None (occurrence: None)
  Receive Date: 20110404
  Receipt Date: 20110323
  Transmission Date: 20111010
  Serious: Yes (Hospitalization)
  Sender: FDA-Public Use
  Company Number: GB-WATSON-2011-04024

PATIENT
  Age: 49 Year
  Sex: Female

DRUGS (5)
  1. PETHIDINE [Suspect]
     Indication: PRODUCT USED FOR UNKNOWN INDICATION
     Dosage: 300 MG, SINGLE
  2. NIZATIDINE (WATSON LABORATORIES) [Suspect]
     Indication: PRODUCT USED FOR UNKNOWN INDICATION
     Dosage: 1.2 G, SINGLE
  3. IBUPROFEN [Suspect]
     Indication: PRODUCT USED FOR UNKNOWN INDICATION
     Dosage: 120 MG, SINGLE
  4. DIAZEPAM [Suspect]
     Indication: PRODUCT USED FOR UNKNOWN INDICATION
     Dosage: 26 MG, SINGLE
  5. AMITRIPTYLINE [Suspect]
     Indication: PRODUCT USED FOR UNKNOWN INDICATION
     Dosage: 420 MG, SINGLE

REACTIONS (3)
  - INTENTIONAL OVERDOSE [None]
  - SOMNOLENCE [None]
  - DEPRESSED LEVEL OF CONSCIOUSNESS [None]
